FAERS Safety Report 4634023-4 (Version None)
Quarter: 2005Q2

REPORT INFORMATION
  Report Type: 
  Country: None (occurrence: None)
  Receive Date: 20050325
  Receipt Date: 20041227
  Transmission Date: 20051028
  Serious: No
  Sender: FDA-Public Use
  Company Number: USA041183128

PATIENT
  Age: 66 Year
  Sex: Female

DRUGS (3)
  1. FORTEO [Suspect]
     Indication: OSTEOPOROSIS
     Dates: start: 20041019
  2. EVISTA [Suspect]
     Dates: end: 20041001
  3. ACTONEL [Concomitant]

REACTIONS (9)
  - DRUG INEFFECTIVE [None]
  - FEAR [None]
  - INJECTION SITE HAEMORRHAGE [None]
  - INJECTION SITE REACTION [None]
  - MEDICATION ERROR [None]
  - NERVOUSNESS [None]
  - OVERDOSE [None]
  - SCRATCH [None]
  - SPINAL FRACTURE [None]
